FAERS Safety Report 4662929-9 (Version None)
Quarter: 2005Q2

REPORT INFORMATION
  Report Type: 
  Country: None (occurrence: None)
  Receive Date: 20050512
  Receipt Date: 20050503
  Transmission Date: 20051028
  Serious: Yes (Other)
  Sender: FDA-Public Use
  Company Number: GBWYE525022MAR05

PATIENT
  Sex: Female

DRUGS (4)
  1. MINOCIN [Suspect]
     Dosage: ONE, 100MG CAPSULE EVERY MORINING, ORAL
     Route: 048
     Dates: start: 20050301
  2. CO-DYDRAMOL (DIHYDROCODEINE BITARTRATE/PARACETAMOL) [Concomitant]
  3. DICLOFENAC SODIUM [Concomitant]
  4. CO-CODAMOL (CODEINE PHOSPHATE/PARACETAMOL) [Concomitant]

REACTIONS (9)
  - ARTHRALGIA [None]
  - BLISTER [None]
  - ERYTHEMA [None]
  - HYPERSENSITIVITY [None]
  - MYALGIA [None]
  - RASH GENERALISED [None]
  - RASH MACULAR [None]
  - RASH MORBILLIFORM [None]
  - URTICARIA [None]
